FAERS Safety Report 12541457 (Version 1)
Quarter: 2016Q3

REPORT INFORMATION
  Report Type: Report from Study
  Country: BR (occurrence: BR)
  Receive Date: 20160708
  Receipt Date: 20160708
  Transmission Date: 20161109
  Serious: Yes (Hospitalization)
  Sender: FDA-Public Use
  Company Number: BR-BIOGEN-2016BI00261643

PATIENT
  Sex: Female

DRUGS (11)
  1. TYSABRI [Suspect]
     Active Substance: NATALIZUMAB
     Indication: MULTIPLE SCLEROSIS
     Route: 065
     Dates: start: 201410
  2. CABERGOLINE. [Concomitant]
     Active Substance: CABERGOLINE
     Indication: HYPOTHALAMO-PITUITARY DISORDER
     Route: 065
  3. CARBAMAZEPINE. [Concomitant]
     Active Substance: CARBAMAZEPINE
     Indication: ANXIETY
  4. COMPLEX B VITAMINS [Concomitant]
     Indication: PRODUCT USED FOR UNKNOWN INDICATION
     Route: 065
  5. CARBAMAZEPINE. [Concomitant]
     Active Substance: CARBAMAZEPINE
     Indication: BIPOLAR DISORDER
     Route: 065
  6. OMEPRAZOLE. [Concomitant]
     Active Substance: OMEPRAZOLE
     Indication: PRODUCT USED FOR UNKNOWN INDICATION
     Dosage: WHEN FASTING
     Route: 065
  7. OSCAL (CALCIUM + VITAMIN D) [Concomitant]
     Indication: PRODUCT USED FOR UNKNOWN INDICATION
     Route: 065
  8. RIVOTRIL [Concomitant]
     Active Substance: CLONAZEPAM
     Indication: BIPOLAR DISORDER
     Route: 065
  9. RISPERIDONE. [Concomitant]
     Active Substance: RISPERIDONE
     Indication: BIPOLAR DISORDER
     Route: 065
  10. RIVOTRIL [Concomitant]
     Active Substance: CLONAZEPAM
     Indication: ANXIETY
  11. RISPERIDONE. [Concomitant]
     Active Substance: RISPERIDONE
     Indication: ANXIETY

REACTIONS (6)
  - Anaemia [Recovered/Resolved]
  - Drug dose omission [Not Recovered/Not Resolved]
  - Multiple sclerosis relapse [Recovered/Resolved]
  - Incorrect drug administration rate [Unknown]
  - Skin papilloma [Unknown]
  - Oral disorder [Unknown]

NARRATIVE: CASE EVENT DATE: 2016
